FAERS Safety Report 23178009 (Version 1)
Quarter: 2023Q4

REPORT INFORMATION
  Report Type: Spontaneous
  Country: US (occurrence: None)
  Receive Date: 20231113
  Receipt Date: 20231113
  Transmission Date: 20240109
  Serious: Yes (unspecified)
  Sender: FDA-Public Use
  Company Number: None

PATIENT
  Age: 57 Year
  Sex: Female
  Weight: 86.4 kg

DRUGS (6)
  1. ROSUVASTATIN [Suspect]
     Active Substance: ROSUVASTATIN
     Indication: Hypercholesterolaemia
     Dosage: FREQUENCY : DAILY;?
     Route: 048
     Dates: start: 2023, end: 20230911
  2. RISPERIDONE [Concomitant]
     Active Substance: RISPERIDONE
  3. GABAPENTIN [Concomitant]
     Active Substance: GABAPENTIN
     Dates: start: 202305
  4. DIVALPROEX SODIUM [Concomitant]
     Active Substance: DIVALPROEX SODIUM
     Dates: start: 20230328
  5. EMPAGLIFLOZIN [Concomitant]
     Active Substance: EMPAGLIFLOZIN
     Dates: start: 20230502
  6. SITAGLIPTIN [Concomitant]
     Active Substance: SITAGLIPTIN
     Dates: start: 20230329

REACTIONS (8)
  - Diabetes mellitus inadequate control [None]
  - Low density lipoprotein increased [None]
  - Oedema peripheral [None]
  - Pain in extremity [None]
  - Trigger finger [None]
  - Pain [None]
  - Arthralgia [None]
  - Joint stiffness [None]

NARRATIVE: CASE EVENT DATE: 20230502
